FAERS Safety Report 6470785-1 (Version None)
Quarter: 2009Q4

REPORT INFORMATION
  Report Type: 
  Country: None (occurrence: None)
  Receive Date: 20091203
  Receipt Date: 20091201
  Transmission Date: 20100525
  Serious: Yes (Other)
  Sender: FDA-Public Use
  Company Number: B0610454A

PATIENT
  Sex: Female

DRUGS (1)
  1. AVANDIA [Suspect]
     Indication: DRUG USE FOR UNKNOWN INDICATION
     Route: 065

REACTIONS (9)
  - ABDOMINAL PAIN [None]
  - ANAEMIA [None]
  - BACK PAIN [None]
  - CARDIAC MURMUR [None]
  - CHILLS [None]
  - DYSPNOEA [None]
  - MUSCLE SPASMS [None]
  - OEDEMA [None]
  - PYREXIA [None]
